FAERS Safety Report 18738812 (Version 1)
Quarter: 2021Q1

REPORT INFORMATION
  Report Type: Spontaneous
  Country: US (occurrence: US)
  Receive Date: 20210114
  Receipt Date: 20210114
  Transmission Date: 20210419
  Serious: Yes (Hospitalization)
  Sender: FDA-Public Use
  Company Number: US-VISTAPHARM, INC.-VER202101-000043

PATIENT
  Age: 69 Year
  Sex: Female

DRUGS (1)
  1. PHENYTOIN. [Suspect]
     Active Substance: PHENYTOIN
     Indication: PRODUCT USED FOR UNKNOWN INDICATION
     Dosage: UNKNOWN

REACTIONS (8)
  - Vomiting [Unknown]
  - Ataxia [Unknown]
  - Fall [Unknown]
  - Cerebellar ataxia [Unknown]
  - Toxicity to various agents [Unknown]
  - Dysarthria [Unknown]
  - Gait disturbance [Unknown]
  - Nystagmus [Unknown]
